FAERS Safety Report 5979454-5 (Version None)
Quarter: 2008Q4

REPORT INFORMATION
  Report Type: 
  Country: None (occurrence: None)
  Receive Date: 20081126
  Receipt Date: 20081116
  Transmission Date: 20090506
  Serious: Yes (Hospitalization)
  Sender: FDA-Public Use
  Company Number: 08H-153-0315198-00

PATIENT
  Age: 41 Day
  Sex: Male

DRUGS (33)
  1. FLUCONAZOLE [Suspect]
     Indication: ANTIBIOTIC THERAPY
  2. VANCOMYCIN [Suspect]
     Indication: ANTIBIOTIC THERAPY
  3. AMINOPHYLLIN [Suspect]
     Indication: DRUG USE FOR UNKNOWN INDICATION
  4. AMPHOTERICIN B [Suspect]
     Indication: ANTIBIOTIC THERAPY
  5. AMPICILLIN [Suspect]
     Indication: ANTIBIOTIC THERAPY
  6. DEXAMETHASONE TAB [Suspect]
     Indication: DRUG USE FOR UNKNOWN INDICATION
  7. DOPAMINE HCL [Suspect]
     Indication: BLOOD PRESSURE
  8. EPINEPHRINE [Suspect]
     Indication: DRUG USE FOR UNKNOWN INDICATION
  9. ERYTHROPOIETIN (ERYTHROPOIETIN) [Suspect]
     Indication: ANAEMIA
     Dosage: 580-710 IU/KG/WEEK
  10. GENTAMICIN [Suspect]
     Indication: ANTIBIOTIC THERAPY
  11. IMIPENEM (IMIPENEM) [Suspect]
     Indication: ANTIBIOTIC THERAPY
  12. INDOMETHACIN [Suspect]
     Indication: PATENT DUCTUS ARTERIOSUS
     Dosage: 0.2 MG/KG, 3 DOSES/COURSE (5 COURSES)
  13. MEROPENEM (MEROPENEM) [Suspect]
     Indication: ANTIBIOTIC THERAPY
  14. TEICOPLANIN (TEICOPLANIN) [Suspect]
     Indication: ANTIBIOTIC THERAPY
  15. TPN (TPN) [Suspect]
     Indication: PARENTERAL NUTRITION
  16. URSO (URSODEOXYCHLIC ACID) [Concomitant]
  17. RED BLOOD CELL (RED BLOOD CELL) [Concomitant]
  18. ATROPINE [Concomitant]
  19. AMPHOTERICIN B [Concomitant]
  20. AMPICILLIN [Concomitant]
  21. DEXAMETHASONE TAB [Concomitant]
  22. DOPAMINE HCL [Concomitant]
  23. EPINEPHRINE [Concomitant]
  24. ERYTHROPOIETIN (ERYTHROPOIETIN) [Concomitant]
  25. GENTAMICIN SULFATE [Concomitant]
  26. IMIPENEM (IMIPENEM) [Concomitant]
  27. INDOMETHACIN [Concomitant]
  28. MEROPENEM (MEROPENEM) [Concomitant]
  29. TEICOPLANIN (TEICOPLANIN) [Concomitant]
  30. TPN (TPN) [Concomitant]
  31. UROS (URSODEOXYCHOLIC ACID) [Concomitant]
  32. RED BLOOD CELL (RED BLOOD CELL) [Concomitant]
  33. ATROPINE [Concomitant]

REACTIONS (27)
  - ACINETOBACTER INFECTION [None]
  - ANAEMIA [None]
  - BACTERAEMIA [None]
  - BRONCHOPULMONARY DYSPLASIA [None]
  - CANDIDIASIS [None]
  - CARDIOMEGALY [None]
  - ESCHERICHIA INFECTION [None]
  - FUNGAEMIA [None]
  - GASTRIC HAEMORRHAGE [None]
  - HEPATIC FAILURE [None]
  - HEPATOMEGALY [None]
  - HYPERTENSION [None]
  - HYPOGLYCAEMIA [None]
  - JAUNDICE CHOLESTATIC [None]
  - MULTI-ORGAN FAILURE [None]
  - NEONATAL CARDIAC FAILURE [None]
  - NEONATAL RESPIRATORY DISTRESS SYNDROME [None]
  - PATENT DUCTUS ARTERIOSUS [None]
  - PERICARDIAL EFFUSION [None]
  - PNEUMONIA [None]
  - PSEUDOMONAS INFECTION [None]
  - PULMONARY HAEMORRHAGE [None]
  - PULMONARY HYPERTENSION [None]
  - SEPSIS [None]
  - SICK SINUS SYNDROME [None]
  - STAPHYLOCOCCAL INFECTION [None]
  - UPPER GASTROINTESTINAL HAEMORRHAGE [None]
